FAERS Safety Report 12890616 (Version 1)
Quarter: 2016Q4

REPORT INFORMATION
  Report Type: Spontaneous
  Country: US (occurrence: US)
  Receive Date: 20161027
  Receipt Date: 20161027
  Transmission Date: 20170207
  Serious: No
  Sender: FDA-Public Use
  Company Number: US-JAZZ-JPI-P-014461

PATIENT
  Sex: Male
  Weight: 89.55 kg

DRUGS (3)
  1. XYREM [Suspect]
     Active Substance: SODIUM OXYBATE
     Indication: NARCOLEPSY
     Dosage: UNKNOWN
     Route: 048
     Dates: start: 20110113, end: 201102
  2. XYREM [Suspect]
     Active Substance: SODIUM OXYBATE
     Indication: APNOEA
     Dosage: 4.5 G, BID
     Route: 048
     Dates: start: 201102
  3. ARMODAFINIL. [Concomitant]
     Active Substance: ARMODAFINIL

REACTIONS (5)
  - Initial insomnia [Not Recovered/Not Resolved]
  - Blood pressure increased [Unknown]
  - Insomnia [Not Recovered/Not Resolved]
  - Nasopharyngitis [Unknown]
  - Weight decreased [Unknown]

NARRATIVE: CASE EVENT DATE: 2011
